FAERS Safety Report 4727648-9 (Version None)
Quarter: 2005Q3

REPORT INFORMATION
  Report Type: 
  Country: None (occurrence: None)
  Receive Date: 20050728
  Receipt Date: 20050728
  Transmission Date: 20060218
  Serious: Yes (Other)
  Sender: FDA-Public Use
  Company Number: None

PATIENT
  Age: 42 Year
  Sex: Male
  Weight: 93.8946 kg

DRUGS (4)
  1. TRICOR [Suspect]
     Dosage: 160 MG DAILY ORAL
     Route: 048
     Dates: start: 20050717, end: 20050725
  2. LISINOPRIL [Concomitant]
  3. FEXOFENADINE HCL [Concomitant]
  4. MOMETASONE FURONATE (NASONEX) [Concomitant]

REACTIONS (2)
  - PAIN OF SKIN [None]
  - RASH ERYTHEMATOUS [None]
